FAERS Safety Report 6353982-5 (Version None)
Quarter: 2009Q3

REPORT INFORMATION
  Report Type: 
  Country: None (occurrence: None)
  Receive Date: 20090914
  Receipt Date: 20090901
  Transmission Date: 20100115
  Serious: No
  Sender: FDA-Public Use
  Company Number: FR-ELI_LILLY_AND_COMPANY-FR200909000206

PATIENT
  Age: 45 Year
  Sex: Male

DRUGS (5)
  1. CYMBALTA [Suspect]
     Dosage: UNK, UNKNOWN
     Route: 048
     Dates: start: 20090713
  2. DEPAKOTE [Concomitant]
     Dosage: 500 MG, 2/D
     Route: 048
     Dates: start: 20090501
  3. MEPRONIZINE [Concomitant]
     Dosage: UNK, UNKNOWN
  4. ATHYMIL [Concomitant]
     Dosage: UNK, UNKNOWN
  5. TERCIAN [Concomitant]
     Dosage: UNK, UNKNOWN

REACTIONS (3)
  - ALANINE AMINOTRANSFERASE INCREASED [None]
  - ASPARTATE AMINOTRANSFERASE INCREASED [None]
  - PLATELET COUNT DECREASED [None]
